FAERS Safety Report 19804185 (Version 2)
Quarter: 2022Q3

REPORT INFORMATION
  Report Type: Spontaneous
  Country: US (occurrence: None)
  Receive Date: 20210908
  Receipt Date: 20220907
  Transmission Date: 20221027
  Serious: No
  Sender: FDA-Public Use
  Company Number: US-FARMAPROD-202106-1031

PATIENT
  Sex: Female

DRUGS (4)
  1. OXERVATE [Suspect]
     Active Substance: CENEGERMIN-BKBJ
     Indication: Neurotrophic keratopathy
     Route: 047
     Dates: start: 20210615, end: 202108
  2. OXERVATE [Suspect]
     Active Substance: CENEGERMIN-BKBJ
     Indication: Dry eye
     Route: 047
     Dates: start: 202108
  3. RESTASIS [Concomitant]
     Active Substance: CYCLOSPORINE
  4. MOTEGRITY [Concomitant]
     Active Substance: PRUCALOPRIDE SUCCINATE

REACTIONS (6)
  - Eye pain [Unknown]
  - Eye irritation [Unknown]
  - Eye contusion [Unknown]
  - Wrong technique in product usage process [Unknown]
  - Eye swelling [Unknown]
  - Product administration error [Unknown]
